FAERS Safety Report 7643216-3 (Version None)
Quarter: 2011Q3

REPORT INFORMATION
  Report Type: 
  Country: None (occurrence: None)
  Receive Date: 20110729
  Receipt Date: 20110719
  Transmission Date: 20111222
  Serious: No
  Sender: FDA-Public Use
  Company Number: US-BIOGENIDEC-2011BI014777

PATIENT
  Age: 30 Year
  Sex: Female

DRUGS (1)
  1. TYSABRI [Suspect]
     Indication: MULTIPLE SCLEROSIS
     Route: 042
     Dates: start: 20110222

REACTIONS (6)
  - FEELING COLD [None]
  - HEADACHE [None]
  - SINUSITIS [None]
  - ANXIETY [None]
  - PAIN IN EXTREMITY [None]
  - EAR CANAL ERYTHEMA [None]
